FAERS Safety Report 8084477-9 (Version None)
Quarter: 2012Q1

REPORT INFORMATION
  Report Type: 
  Country: None (occurrence: None)
  Receive Date: 20120128
  Receipt Date: 20110323
  Transmission Date: 20120608
  Serious: No
  Sender: FDA-Public Use
  Company Number: US-ABBOTT-11P-163-0714143-00

PATIENT
  Sex: Male
  Weight: 74.91 kg

DRUGS (5)
  1. HUMIRA [Suspect]
     Indication: PSORIASIS
     Dates: start: 20101101, end: 20101201
  2. SEROQUEL [Concomitant]
     Indication: INSOMNIA
     Dosage: A DAY
  3. LITHIUM CARBONATE [Concomitant]
     Indication: BIPOLAR I DISORDER
     Dosage: A DAY
  4. OMEPRAZOLE [Concomitant]
     Indication: ULCER
     Dosage: A DAY
  5. OMEPRAZOLE [Concomitant]
     Indication: DIVERTICULITIS

REACTIONS (2)
  - LABORATORY TEST ABNORMAL [None]
  - PSORIASIS [None]
